FAERS Safety Report 5570560-6 (Version None)
Quarter: 2007Q4

REPORT INFORMATION
  Report Type: 
  Country: None (occurrence: None)
  Receive Date: 20071221
  Receipt Date: 20071206
  Transmission Date: 20080405
  Serious: Yes (Other)
  Sender: FDA-Public Use
  Company Number: GB-TEVA-164981ISR

PATIENT
  Age: 42 Year
  Sex: Female
  Weight: 76.5 kg

DRUGS (2)
  1. TAMOXIFEN CITRATE [Suspect]
     Indication: BREAST CANCER
     Dosage: 20 DF
     Route: 048
     Dates: start: 20051212
  2. TRASTUZUMAB [Suspect]
     Indication: BREAST CANCER
     Route: 042
     Dates: start: 20060901, end: 20071001

REACTIONS (1)
  - TYPE 2 DIABETES MELLITUS [None]
